FAERS Safety Report 6556712-7 (Version None)
Quarter: 2010Q1

REPORT INFORMATION
  Report Type: 
  Country: None (occurrence: None)
  Receive Date: 20100128
  Receipt Date: 20100104
  Transmission Date: 20100710
  Serious: Yes (Death)
  Sender: FDA-Public Use
  Company Number: US-BAYER-201012162GPV

PATIENT
  Age: 38 Year
  Sex: Male

DRUGS (4)
  1. DIPHENHYDRAMINE [Suspect]
     Route: 048
  2. NAPROXEN [Suspect]
  3. CITALOPRAM [Suspect]
     Route: 048
  4. TRAZODONE [Suspect]

REACTIONS (1)
  - DRUG TOXICITY [None]
